FAERS Safety Report 9029661 (Version 3)
Quarter: 2013Q1

REPORT INFORMATION
  Report Type: Spontaneous
  Country: MX (occurrence: MX)
  Receive Date: 20130125
  Receipt Date: 20130315
  Transmission Date: 20140127
  Serious: Yes (Other)
  Sender: FDA-Public Use
  Company Number: PHHY2013MX006557

PATIENT
  Age: 85 Year
  Sex: Female

DRUGS (3)
  1. CO-DIOVAN [Suspect]
     Indication: HYPERTENSION
     Dosage: 2.5 DF (80MG VALS/12.5MG HCT) DAILY
     Route: 048
     Dates: start: 199001
  2. CELECOXIB [Concomitant]
     Indication: BACK PAIN
     Dosage: 1 DF, DAILY
     Dates: start: 198001
  3. ACETAMINOPHEN [Concomitant]
     Indication: BACK PAIN
     Dosage: 1 DF, DAILY
     Dates: start: 198001

REACTIONS (11)
  - Arthropathy [Unknown]
  - Bronchial disorder [Unknown]
  - Weight increased [Not Recovered/Not Resolved]
  - Sluggishness [Not Recovered/Not Resolved]
  - Memory impairment [Not Recovered/Not Resolved]
  - Gastritis [Unknown]
  - Gastric disorder [Unknown]
  - Wrong technique in drug usage process [Unknown]
  - Inflammation [Recovered/Resolved]
  - Somnolence [Recovered/Resolved]
  - Dyspepsia [Recovered/Resolved]
